FAERS Safety Report 21708107 (Version 2)
Quarter: 2022Q4

REPORT INFORMATION
  Report Type: Report from Study
  Country: MX (occurrence: MX)
  Receive Date: 20221209
  Receipt Date: 20221220
  Transmission Date: 20230113
  Serious: No
  Sender: FDA-Public Use
  Company Number: MX-ALLERGAN-2240596US

PATIENT
  Age: 16 Year
  Sex: Female
  Weight: 66.1 kg

DRUGS (3)
  1. CARIPRAZINE HYDROCHLORIDE [Suspect]
     Active Substance: CARIPRAZINE HYDROCHLORIDE
     Indication: Schizophrenia
     Dosage: UNK
     Dates: start: 20221013
  2. CARIPRAZINE HYDROCHLORIDE [Suspect]
     Active Substance: CARIPRAZINE HYDROCHLORIDE
     Indication: Schizophrenia
     Dosage: UNK
     Dates: start: 20221013
  3. PLACEBO [Suspect]
     Active Substance: UNSPECIFIED INGREDIENT
     Indication: Schizophrenia
     Dosage: UNK
     Dates: start: 20221013

REACTIONS (1)
  - Accommodation disorder [Recovering/Resolving]

NARRATIVE: CASE EVENT DATE: 20221021
